FAERS Safety Report 7592265-2 (Version None)
Quarter: 2011Q3

REPORT INFORMATION
  Report Type: 
  Country: None (occurrence: None)
  Receive Date: 20110706
  Receipt Date: 20110622
  Transmission Date: 20111222
  Serious: Yes (Other)
  Sender: FDA-Public Use
  Company Number: CA-JNJFOC-20110305184

PATIENT
  Sex: Female
  Weight: 47.2 kg

DRUGS (14)
  1. OXYCODONE HCL AND ACETAMINOPHEN [Concomitant]
  2. SCOPOLAMINE [Concomitant]
  3. OXAZEPAM [Concomitant]
  4. PREDNISONE [Concomitant]
  5. METHOTREXATE [Concomitant]
  6. PMS-CHOLESTYRAMINE [Concomitant]
  7. FOLIC ACID [Concomitant]
  8. HYDROMORPHONE HCL [Concomitant]
  9. REMICADE [Suspect]
     Indication: CROHN'S DISEASE
     Route: 042
     Dates: start: 20081218
  10. METOCLOPRAMIDE [Concomitant]
  11. RAMIPRIL [Concomitant]
  12. OXYCONTIN [Concomitant]
  13. ALENDRONATE SODIUM [Concomitant]
  14. DILTIAZEM [Concomitant]

REACTIONS (3)
  - ABASIA [None]
  - ABDOMINAL PAIN [None]
  - MALAISE [None]
